FAERS Safety Report 12478112 (Version 1)
Quarter: 2016Q2

REPORT INFORMATION
  Report Type: Spontaneous
  Country: US (occurrence: US)
  Receive Date: 20160617
  Receipt Date: 20160617
  Transmission Date: 20160815
  Serious: Yes (Hospitalization)
  Sender: FDA-Public Use
  Company Number: US-LUNDBECK-DKLU1111483

PATIENT
  Sex: Male
  Weight: 4 kg

DRUGS (6)
  1. KEPPRA [Concomitant]
     Active Substance: LEVETIRACETAM
     Indication: PRODUCT USED FOR UNKNOWN INDICATION
     Route: 065
  2. PHENOBARBITAL. [Concomitant]
     Active Substance: PHENOBARBITAL
     Indication: PRODUCT USED FOR UNKNOWN INDICATION
     Route: 065
  3. SABRIL [Suspect]
     Active Substance: VIGABATRIN
     Indication: INFANTILE SPASMS
     Route: 048
     Dates: start: 20150319
  4. SABRIL [Suspect]
     Active Substance: VIGABATRIN
     Route: 048
  5. SABRIL [Suspect]
     Active Substance: VIGABATRIN
     Route: 048
  6. SABRIL [Suspect]
     Active Substance: VIGABATRIN
     Route: 048

REACTIONS (2)
  - Failure to thrive [Recovering/Resolving]
  - Pertussis [Unknown]
